FAERS Safety Report 5022853-9 (Version None)
Quarter: 2006Q2

REPORT INFORMATION
  Report Type: 
  Country: None (occurrence: None)
  Receive Date: 20060426
  Receipt Date: 20060321
  Transmission Date: 20061013
  Serious: Yes (Other)
  Sender: FDA-Public Use
  Company Number: 2006041384

PATIENT
  Age: 25 Year

DRUGS (11)
  1. LYRICA [Suspect]
     Dosage: 350 (1 D)
  2. ESCITALOPRAM (ESCITALOPRAM) [Concomitant]
  3. BACLOFEN [Concomitant]
  4. LEVETIRACETAM [Concomitant]
  5. MIDODRINE HYDROCHLORIDE [Concomitant]
  6. OXYBUTYNIN CHLORIDE [Concomitant]
  7. DOCUSATE (DOCUSATE) [Concomitant]
  8. CLONAZEPAM [Concomitant]
  9. BACTRIM [Concomitant]
  10. NAPROXEN [Concomitant]
  11. ONDANSETRON [Concomitant]

REACTIONS (1)
  - AMPHETAMINES POSITIVE [None]
